FAERS Safety Report 8396765-7 (Version None)
Quarter: 2012Q2

REPORT INFORMATION
  Report Type: 
  Country: None (occurrence: None)
  Receive Date: 20120530
  Receipt Date: 20120525
  Transmission Date: 20120825
  Serious: Yes (Hospitalization, Other)
  Sender: FDA-Public Use
  Company Number: PHEH2012US010837

PATIENT
  Sex: Male

DRUGS (5)
  1. DIOVAN HCT [Suspect]
     Indication: BLOOD PRESSURE
     Dosage: 0.5 DF (320/25 MG), DAILY
     Route: 048
  2. BENICAR [Suspect]
     Indication: BLOOD PRESSURE
     Dosage: UNK UKN, DAILY
     Route: 048
  3. DIURETICS [Suspect]
     Indication: BLOOD PRESSURE
     Dosage: UNK UKN, DAILY
     Route: 048
  4. FISH OIL [Concomitant]
     Indication: PROPHYLAXIS
     Dosage: UNK UKN, DAILY
     Route: 048
  5. DIOVAN HCT [Suspect]
     Dosage: 1 DF (320/25 MG), UNK

REACTIONS (7)
  - THROMBOSIS [None]
  - WRONG TECHNIQUE IN DRUG USAGE PROCESS [None]
  - CHOLECYSTITIS INFECTIVE [None]
  - CELLULITIS [None]
  - BLOOD PRESSURE DECREASED [None]
  - NOSOCOMIAL INFECTION [None]
  - MYALGIA [None]
